FAERS Safety Report 9227069 (Version 1)
Quarter: 2013Q1

REPORT INFORMATION
  Report Type: Spontaneous
  Country: US (occurrence: None)
  Receive Date: 20120927
  Receipt Date: 20120927
  Transmission Date: 20140127
  Serious: Yes (Other)
  Sender: FDA-Public Use
  Company Number: M-12-004

PATIENT
  Age: 70 Year
  Sex: Female

DRUGS (1)
  1. DIGOXIN, 250 MCG [Suspect]
     Dosage: ORAL (047)?
     Route: 048

REACTIONS (1)
  - No adverse event [None]
